FAERS Safety Report 4963887-X (Version None)
Quarter: 2006Q1

REPORT INFORMATION
  Report Type: 
  Country: None (occurrence: None)
  Receive Date: 20060330
  Receipt Date: 20060321
  Transmission Date: 20060701
  Serious: Yes (Hospitalization)
  Sender: FDA-Public Use
  Company Number: 2006-03-1441

PATIENT

DRUGS (2)
  1. TEMODAR [Suspect]
     Dosage: ORAL
     Route: 048
  2. RADIATION THERAPY [Suspect]
     Dosage: X-RAY THERAPY

REACTIONS (2)
  - IDIOPATHIC THROMBOCYTOPENIC PURPURA [None]
  - PANCYTOPENIA [None]
